FAERS Safety Report 5578504-8 (Version None)
Quarter: 2007Q4

REPORT INFORMATION
  Report Type: 
  Country: None (occurrence: None)
  Receive Date: 20071231
  Receipt Date: 20071219
  Transmission Date: 20080405
  Serious: Yes (Hospitalization, Other)
  Sender: FDA-Public Use
  Company Number: US-PFIZER INC-2007107382

PATIENT
  Sex: Female
  Weight: 79.4 kg

DRUGS (21)
  1. LYRICA [Interacting]
     Indication: ANKYLOSING SPONDYLITIS
     Dates: start: 20070101, end: 20071212
  2. XANAX [Interacting]
     Indication: SLEEP DISORDER
  3. AMBIEN [Interacting]
     Indication: SLEEP DISORDER
  4. NARCAN [Suspect]
     Indication: DRUG ABUSE
  5. ACIPHEX [Concomitant]
  6. ALLERX [Concomitant]
  7. ARAVA [Concomitant]
  8. BUSPAR [Concomitant]
  9. ALL OTHER THERAPEUTIC PRODUCTS [Concomitant]
  10. CYMBALTA [Concomitant]
  11. DITROPAN XL [Concomitant]
  12. ESTROGENS [Concomitant]
  13. FENTANYL [Concomitant]
  14. ALL OTHER THERAPEUTIC PRODUCTS [Concomitant]
  15. LEVOTHYROXINE SODIUM [Concomitant]
  16. PERIACTIN [Concomitant]
  17. TOPAMAX [Concomitant]
  18. TOPROL-XL [Concomitant]
  19. TRAZODONE HCL [Concomitant]
  20. VERAMYST [Concomitant]
  21. WELLBUTRIN SR [Concomitant]

REACTIONS (13)
  - AMNESIA [None]
  - COMA [None]
  - CONFUSIONAL STATE [None]
  - CONTUSION [None]
  - DRUG INTERACTION [None]
  - DRUG TOXICITY [None]
  - DYSSTASIA [None]
  - MYALGIA [None]
  - OEDEMA PERIPHERAL [None]
  - PYREXIA [None]
  - SPEECH DISORDER [None]
  - UNEVALUABLE EVENT [None]
  - WEIGHT INCREASED [None]
